FAERS Safety Report 9760214 (Version 1)
Quarter: 2013Q4

REPORT INFORMATION
  Report Type: Spontaneous
  Country: US (occurrence: US)
  Receive Date: 20131216
  Receipt Date: 20131216
  Transmission Date: 20140711
  Serious: No
  Sender: FDA-Public Use
  Company Number: US-PFIZER INC-2013359159

PATIENT
  Age: 48 Year
  Sex: Female
  Weight: 99.77 kg

DRUGS (3)
  1. LYRICA [Suspect]
     Indication: FIBROMYALGIA
     Dosage: 75 MG, 2X/DAY
     Route: 048
     Dates: start: 2006
  2. LYRICA [Suspect]
     Indication: NEURALGIA
  3. SINGULAIR [Concomitant]
     Indication: ASTHMA
     Dosage: 10 MG, DAILY

REACTIONS (2)
  - Hyperhidrosis [Recovered/Resolved]
  - Hot flush [Recovered/Resolved]
